FAERS Safety Report 21472399 (Version 1)
Quarter: 2022Q4

REPORT INFORMATION
  Report Type: Spontaneous
  Country: US (occurrence: None)
  Receive Date: 20221018
  Receipt Date: 20221018
  Transmission Date: 20230113
  Serious: No
  Sender: FDA-Public Use
  Company Number: 2022A333722

PATIENT
  Sex: Female

DRUGS (1)
  1. BREZTRI [Suspect]
     Active Substance: BUDESONIDE\FORMOTEROL\GLYCOPYRROLATE
     Dosage: MORNING AND AT NIGHT
     Route: 055

REACTIONS (9)
  - Emotional distress [Unknown]
  - Dyspnoea [Unknown]
  - Dysphonia [Unknown]
  - Illness [Unknown]
  - Feeling abnormal [Unknown]
  - Chronic obstructive pulmonary disease [Unknown]
  - Panic reaction [Unknown]
  - Product dose omission issue [Unknown]
  - Intentional product misuse [Unknown]
